FAERS Safety Report 9023459 (Version 3)
Quarter: 2013Q2

REPORT INFORMATION
  Report Type: Report from Study
  Country: US (occurrence: US)
  Receive Date: 20130121
  Receipt Date: 20130529
  Transmission Date: 20140414
  Serious: Yes (Hospitalization)
  Sender: FDA-Public Use
  Company Number: US-ABBOTT-13P-163-1035838-00

PATIENT
  Age: 73 Year
  Sex: Female

DRUGS (18)
  1. HUMIRA [Suspect]
     Indication: CROHN^S DISEASE
     Dates: start: 20121006, end: 20121006
  2. HUMIRA [Suspect]
     Dates: start: 20121023
  3. HUMIRA [Suspect]
     Dates: start: 20121204
  4. HUMIRA [Suspect]
     Dates: start: 20130101
  5. GLIPIZIDE [Concomitant]
     Indication: DIABETES MELLITUS
  6. LANTUS INSULIN [Concomitant]
     Indication: DIABETES MELLITUS
     Dosage: 4-6 UNITS QHS
     Route: 058
  7. LEVOTHYROXINE [Concomitant]
     Indication: HYPOTHYROIDISM
  8. CARVEDILOL [Concomitant]
     Indication: HYPERTENSION
  9. OMEPRAZOLE [Concomitant]
     Indication: GASTROOESOPHAGEAL REFLUX DISEASE
  10. FOLID ACID [Concomitant]
     Indication: PRODUCT USED FOR UNKNOWN INDICATION
  11. VITAMIN D [Concomitant]
     Indication: PRODUCT USED FOR UNKNOWN INDICATION
  12. VITAMIN C [Concomitant]
     Indication: PRODUCT USED FOR UNKNOWN INDICATION
     Dosage: DAILY
  13. VITAMIN B12 [Concomitant]
     Indication: PRODUCT USED FOR UNKNOWN INDICATION
     Dosage: DAILY
  14. VITAMIN B6 [Concomitant]
     Indication: PRODUCT USED FOR UNKNOWN INDICATION
     Dosage: DAILY
  15. MVI [Concomitant]
     Indication: PRODUCT USED FOR UNKNOWN INDICATION
     Dosage: DAILY
  16. ASA [Concomitant]
     Indication: ANTICOAGULANT THERAPY
  17. CIPROFLOXACIN [Concomitant]
     Indication: CROHN^S DISEASE
  18. TOTAL PARENTERAL NUTRITION [Concomitant]
     Indication: PRODUCT USED FOR UNKNOWN INDICATION

REACTIONS (7)
  - Intestinal fistula [Recovering/Resolving]
  - Crohn^s disease [Recovering/Resolving]
  - Cystitis [Recovering/Resolving]
  - Vesical fistula [Recovering/Resolving]
  - Oropharyngeal pain [Unknown]
  - Headache [Unknown]
  - Candida infection [Unknown]
